FAERS Safety Report 11822076 (Version 1)
Quarter: 2015Q4

REPORT INFORMATION
  Report Type: Spontaneous
  Country: US (occurrence: US)
  Receive Date: 20151210
  Receipt Date: 20151210
  Transmission Date: 20160305
  Serious: No
  Sender: FDA-Public Use
  Company Number: US-JNJFOC-20150619873

PATIENT
  Age: 76 Year
  Sex: Male

DRUGS (16)
  1. NASONEX [Concomitant]
     Active Substance: MOMETASONE FUROATE
  2. KEFLEX [Concomitant]
     Active Substance: CEPHALEXIN
  3. VITAMINS [Concomitant]
     Active Substance: VITAMINS
  4. TYLENOL [Concomitant]
     Active Substance: ACETAMINOPHEN
  5. CEPHALEXIN. [Concomitant]
     Active Substance: CEPHALEXIN
  6. POTASSIUM [Concomitant]
     Active Substance: POTASSIUM
  7. LEVOTHYROXINE. [Concomitant]
     Active Substance: LEVOTHYROXINE
  8. MIRTAZAPINE. [Concomitant]
     Active Substance: MIRTAZAPINE
  9. SENOKOT [Concomitant]
     Active Substance: SENNOSIDES
  10. GLUCOSAMINE [Concomitant]
     Active Substance: GLUCOSAMINE
  11. IMBRUVICA [Suspect]
     Active Substance: IBRUTINIB
     Indication: CHRONIC LYMPHOCYTIC LEUKAEMIA
     Route: 048
     Dates: start: 20140828
  12. REMERON [Concomitant]
     Active Substance: MIRTAZAPINE
  13. VITAMIN C [Concomitant]
     Active Substance: ASCORBIC ACID
  14. ARICEPT [Concomitant]
     Active Substance: DONEPEZIL HYDROCHLORIDE
  15. BACTRIM [Concomitant]
     Active Substance: SULFAMETHOXAZOLE\TRIMETHOPRIM
  16. VITAMIN B COMPLEX [Concomitant]
     Active Substance: CYANOCOBALAMIN\DEXPANTHENOL\NIACINAMIDE\PYRIDOXINE HYDROCHLORIDE\RIBOFLAVIN 5^-PHOSPHATE SODIUM\THIAMINE HYDROCHLORIDE\VITAMIN B COMPLEX

REACTIONS (3)
  - Diarrhoea [Unknown]
  - Neutrophil count increased [Recovering/Resolving]
  - Skin disorder [Unknown]

NARRATIVE: CASE EVENT DATE: 20140919
